FAERS Safety Report 8359129-8 (Version None)
Quarter: 2012Q2

REPORT INFORMATION
  Report Type: 
  Country: None (occurrence: None)
  Receive Date: 20120511
  Receipt Date: 20120511
  Transmission Date: 20120825
  Serious: Yes (Hospitalization)
  Sender: FDA-Public Use
  Company Number: None

PATIENT
  Age: 79 Year
  Sex: Female

DRUGS (2)
  1. PRADAXA [Suspect]
     Indication: ATRIAL FIBRILLATION
     Dosage: 150 MG TWICE DAILY PO
     Route: 048
     Dates: start: 20120220, end: 20120306
  2. PRADAXA [Suspect]
     Indication: VENOUS INSUFFICIENCY
     Dosage: 150 MG TWICE DAILY PO
     Route: 048
     Dates: start: 20120220, end: 20120306

REACTIONS (1)
  - FAECES DISCOLOURED [None]
